FAERS Safety Report 5252915-2 (Version None)
Quarter: 2007Q1

REPORT INFORMATION
  Report Type: 
  Country: None (occurrence: None)
  Receive Date: 20070227
  Receipt Date: 20070212
  Transmission Date: 20070707
  Serious: Yes (Disabling)
  Sender: FDA-Public Use
  Company Number: GXKR2007NL01627

PATIENT
  Age: 55 Year
  Sex: Female
  Weight: 74 kg

DRUGS (7)
  1. BUMETANIDE [Suspect]
     Indication: CARDIAC FAILURE
     Dosage: 1 MG, QD, ORAL
     Route: 048
     Dates: start: 20030201
  2. SPIRONOLACTONE [Suspect]
     Indication: CARDIAC FAILURE
     Dosage: 25 MG, QD, ORAL
     Route: 048
     Dates: start: 20041201
  3. CORDARONE [Suspect]
     Indication: ATRIAL FIBRILLATION
     Dosage: 1 DF, QD, ORAL
     Route: 048
     Dates: start: 20030601
  4. SELOKEEN ZOC(METOPROLOL SUCCINATE) TABLET, 47.5MG [Suspect]
     Indication: CARDIAC FAILURE
     Dosage: 50 MG, QD, ORAL
     Route: 048
     Dates: start: 20030201
  5. NEWACE(FOSINOPRIL SODIUM) TABLET, 10MG [Suspect]
     Indication: CARDIAC FAILURE
     Dosage: 10 MG, QD, ORAL
     Route: 048
     Dates: start: 20030201
  6. ACENOCOUMAROL (ACENOCOUMAROL) [Concomitant]
  7. CRESTOR [Concomitant]

REACTIONS (6)
  - DRY MOUTH [None]
  - HEADACHE [None]
  - MEMORY IMPAIRMENT [None]
  - PHOTOPHOBIA [None]
  - PHOTOSENSITIVITY REACTION [None]
  - SKIN DISCOLOURATION [None]
